FAERS Safety Report 7238008-3 (Version None)
Quarter: 2011Q1

REPORT INFORMATION
  Report Type: 
  Country: None (occurrence: None)
  Receive Date: 20110121
  Receipt Date: 20110118
  Transmission Date: 20110831
  Serious: Yes (Hospitalization)
  Sender: FDA-Public Use
  Company Number: A0885900A

PATIENT
  Age: 50 Year
  Sex: Female

DRUGS (3)
  1. NEBULIZER [Concomitant]
  2. PREDNISOLONE [Suspect]
  3. ADVAIR [Suspect]
     Indication: ASTHMA
     Dosage: 1PUFF TWICE PER DAY
     Route: 055
     Dates: start: 20040101

REACTIONS (4)
  - DRUG INEFFECTIVE [None]
  - PRODUCT QUALITY ISSUE [None]
  - DYSPNOEA [None]
  - EXPIRED DRUG ADMINISTERED [None]
